FAERS Safety Report 17455515 (Version 1)
Quarter: 2020Q1

REPORT INFORMATION
  Report Type: Spontaneous
  Country: DE (occurrence: DE)
  Receive Date: 20200225
  Receipt Date: 20200225
  Transmission Date: 20200409
  Serious: Yes (Hospitalization)
  Sender: FDA-Public Use
  Company Number: DE-TEVA-2020-DE-1191439

PATIENT
  Age: 70 Year
  Sex: Male
  Weight: 72 kg

DRUGS (8)
  1. NEBIVOLOL. [Interacting]
     Active Substance: NEBIVOLOL
     Dosage: 5 MG, 0.5-0-0-0
     Route: 048
  2. ATORVASTATIN [Concomitant]
     Active Substance: ATORVASTATIN
     Dosage: 40 MILLIGRAM DAILY; 40 MG, 0-0-0-0.5
     Route: 048
  3. EPLERENONE. [Interacting]
     Active Substance: EPLERENONE
     Dosage: 25 MILLIGRAM DAILY; 25 MG, 1-0-0-0
     Route: 048
  4. ACETYLSALICYLSAEURE [Concomitant]
     Active Substance: ASPIRIN
     Dosage: 100 MILLIGRAM DAILY; 100 MG, 0-1-0-0
     Route: 048
  5. TORASEMIDE [Suspect]
     Active Substance: TORSEMIDE
     Dosage: 20 MILLIGRAM DAILY; 20 MG, 0.5-0-0-0
     Route: 048
  6. METOPROLOL. [Interacting]
     Active Substance: METOPROLOL
     Dosage: 23.75 MG, 1-0-0-0
     Route: 048
  7. ENTRESTO [Interacting]
     Active Substance: SACUBITRIL\VALSARTAN
     Dosage: 1-0-0-0
     Route: 048
  8. MAGNESIUM [Concomitant]
     Active Substance: MAGNESIUM
     Dosage: 400 MILLIGRAM DAILY; 400 MG, 0-0-1-0
     Route: 048

REACTIONS (4)
  - Pain [Unknown]
  - Fracture [Unknown]
  - Labelled drug-drug interaction medication error [Unknown]
  - Fall [Unknown]
